FAERS Safety Report 12996304 (Version 3)
Quarter: 2019Q4

REPORT INFORMATION
  Report Type: Spontaneous
  Country: FR (occurrence: FR)
  Receive Date: 20161203
  Receipt Date: 20191108
  Transmission Date: 20200122
  Serious: Yes (Congenital Anomaly, Other)
  Sender: FDA-Public Use
  Company Number: FR-AUROBINDO-AUR-APL-2016-14895

PATIENT
  Age: 68 Day
  Sex: Male

DRUGS (8)
  1. ESOMEPRAZOLE GASTRO-RESISTANT CAPSULE, HARD [Suspect]
     Active Substance: ESOMEPRAZOLE
     Indication: GASTROOESOPHAGEAL REFLUX DISEASE
     Dosage: 1 MILLIGRAM/KILOGRAM, ONCE A DAY
     Route: 065
  2. SODIUM ALGINATE [Suspect]
     Active Substance: SODIUM ALGINATE
     Indication: GASTROOESOPHAGEAL REFLUX DISEASE
  3. SODIUM ALGINATE [Suspect]
     Active Substance: SODIUM ALGINATE
     Indication: ANTACID THERAPY
     Dosage: AT USUAL DOSES
     Route: 065
  4. GAVISCON [Suspect]
     Active Substance: ALUMINUM HYDROXIDE\MAGNESIUM CARBONATE
     Indication: GASTROOESOPHAGEAL REFLUX DISEASE
     Dosage: ADDED ON DAY 49
     Route: 065
  5. GAVISCON [Suspect]
     Active Substance: ALUMINUM HYDROXIDE\MAGNESIUM CARBONATE
     Indication: ANTACID THERAPY
  6. ALENDRONIC ACID TABLETS [Suspect]
     Active Substance: ALENDRONIC ACID
     Indication: PRODUCT USED FOR UNKNOWN INDICATION
     Dosage: 70 MILLIGRAM
     Route: 064
  7. ESOMEPRAZOLE GASTRO-RESISTANT CAPSULE, HARD [Suspect]
     Active Substance: ESOMEPRAZOLE
     Indication: ANTACID THERAPY
  8. NEOCATE [Concomitant]
     Active Substance: DIETARY SUPPLEMENT
     Indication: PRODUCT USED FOR UNKNOWN INDICATION
     Dosage: FROM DAY 29
     Route: 065

REACTIONS (7)
  - Hypophosphataemic osteomalacia [Recovered/Resolved]
  - Craniotabes [Recovered/Resolved]
  - Hypophosphataemia [Recovered/Resolved]
  - Hypercalciuria [Recovered/Resolved]
  - Blood parathyroid hormone decreased [Recovered/Resolved]
  - Foetal exposure during pregnancy [Recovered/Resolved]
  - Blood alkaline phosphatase increased [Recovered/Resolved]
